FAERS Safety Report 13000021 (Version 1)
Quarter: 2016Q4

REPORT INFORMATION
  Report Type: Spontaneous
  Country: US (occurrence: US)
  Receive Date: 20161205
  Receipt Date: 20161205
  Transmission Date: 20170207
  Serious: Yes (Hospitalization)
  Sender: FDA-Public Use
  Company Number: US-BEH-2016075749

PATIENT
  Age: 32 Year
  Sex: Male
  Weight: 88.89 kg

DRUGS (9)
  1. MEPRON                             /00049601/ [Concomitant]
     Active Substance: METHYLPREDNISOLONE
  2. LISINOPRIL. [Concomitant]
     Active Substance: LISINOPRIL
  3. HIZENTRA [Suspect]
     Active Substance: HUMAN IMMUNOGLOBULIN G
     Indication: IMMUNODEFICIENCY COMMON VARIABLE
     Dosage: 10 G, QW
     Route: 058
  4. CLONIDINE. [Concomitant]
     Active Substance: CLONIDINE
  5. PHOSLO [Concomitant]
     Active Substance: CALCIUM ACETATE
  6. OMEPRAZOLE. [Concomitant]
     Active Substance: OMEPRAZOLE
  7. HYDRALAZINE [Concomitant]
     Active Substance: HYDRALAZINE HYDROCHLORIDE
  8. NIFEDIPINE. [Concomitant]
     Active Substance: NIFEDIPINE
  9. METOPROLOL. [Concomitant]
     Active Substance: METOPROLOL

REACTIONS (4)
  - Fatigue [Unknown]
  - Haemoglobin decreased [Unknown]
  - Renal impairment [Unknown]
  - Asthenia [Unknown]

NARRATIVE: CASE EVENT DATE: 2016
